FAERS Safety Report 22343726 (Version 1)
Quarter: 2023Q2

REPORT INFORMATION
  Report Type: Spontaneous
  Country: US (occurrence: None)
  Receive Date: 20230518
  Receipt Date: 20230518
  Transmission Date: 20230722
  Serious: No
  Sender: FDA-Public Use
  Company Number: None

PATIENT
  Age: 74 Year
  Sex: Male

DRUGS (6)
  1. ABIRATERONE ACETATE [Suspect]
     Active Substance: ABIRATERONE ACETATE
     Indication: Prostate cancer
     Dosage: 4T QD PO?
     Route: 048
  2. BUSPIRONE [Concomitant]
  3. LAMOTRIGINE [Concomitant]
     Active Substance: LAMOTRIGINE
  4. METFORMIN HCL [Concomitant]
  5. ZYTIGA [Concomitant]
  6. KETOROLAC TROMETHAMINE [Concomitant]
     Active Substance: KETOROLAC TROMETHAMINE

REACTIONS (2)
  - Hypotensive crisis [None]
  - Therapy interrupted [None]

NARRATIVE: CASE EVENT DATE: 20230512
